FAERS Safety Report 25549681 (Version 1)
Quarter: 2025Q3

REPORT INFORMATION
  Report Type: Report from Study
  Country: JP (occurrence: JP)
  Receive Date: 20250714
  Receipt Date: 20250714
  Transmission Date: 20251021
  Serious: Yes (Hospitalization)
  Sender: ROCHE
  Company Number: JP-ROCHE-10000141932

PATIENT
  Age: 57 Year
  Sex: Female

DRUGS (5)
  1. RITUXAN [Suspect]
     Active Substance: RITUXIMAB
     Indication: Pemphigus
     Route: 042
     Dates: start: 20241022, end: 20241022
  2. DAPSONE [Concomitant]
     Active Substance: DAPSONE
  3. AZATHIOPRINE [Concomitant]
     Active Substance: AZATHIOPRINE
  4. CEFTRIAXONE SODIUM [Concomitant]
     Active Substance: CEFTRIAXONE SODIUM
     Route: 042
     Dates: start: 20241101, end: 20241112
  5. MOXIFLOXACIN HYDROCHLORIDE [Concomitant]
     Active Substance: MOXIFLOXACIN HYDROCHLORIDE
     Route: 048
     Dates: start: 20241126

REACTIONS (2)
  - Pulmonary nocardiosis [Recovering/Resolving]
  - Balance disorder [Unknown]

NARRATIVE: CASE EVENT DATE: 20241028
